FAERS Safety Report 7666146 (Version 6)
Quarter: 2013Q3

REPORT INFORMATION
  Report Type: Report from Study
  Country: CA (occurrence: CA)
  Receive Date: 20101112
  Receipt Date: 20130804
  Transmission Date: 20140515
  Serious: Yes (Death, Hospitalization)
  Sender: FDA-Public Use
  Company Number: PHHY2010CA74801

PATIENT
  Age: 64 Year
  Sex: Female

DRUGS (2)
  1. SANDOSTATIN LAR [Suspect]
     Indication: METASTATIC NEOPLASM
     Dosage: 20 MG EVERY FOUR WEEKS
     Route: 030
     Dates: start: 20100129
  2. SANDOSTATIN LAR [Suspect]
     Dosage: 30 MG, EVERY 4 WEEKS
     Route: 030
     Dates: end: 20130615

REACTIONS (9)
  - Death [Fatal]
  - Lung disorder [Unknown]
  - Dyspnoea [Unknown]
  - Anaemia [Unknown]
  - Asthenia [Unknown]
  - Lung infection [Unknown]
  - Cough [Unknown]
  - Hip fracture [Unknown]
  - Blood pressure systolic increased [Unknown]
